FAERS Safety Report 6985135-1 (Version None)
Quarter: 2010Q3

REPORT INFORMATION
  Report Type: 
  Country: None (occurrence: None)
  Receive Date: 20100915
  Receipt Date: 20100112
  Transmission Date: 20110219
  Serious: Yes (Hospitalization)
  Sender: FDA-Public Use
  Company Number: US-ROCHE-677845

PATIENT

DRUGS (10)
  1. BEVACIZUMAB [Suspect]
     Indication: RECTAL CANCER
     Dosage: FREQUENCY: OVER 30 TO 90 MINUTES ON DAYS 1, 15 AND 29 DURING CHEMOTHERAPY.
     Route: 042
     Dates: start: 20090923
  2. BEVACIZUMAB [Suspect]
     Dosage: POST-OPERATIVE, LAST DOSE PRIOR TO SAE: 11 NOVEMBER 2009.
     Route: 042
  3. CAPECITABINE [Suspect]
     Indication: RECTAL CANCER
     Dosage: FREQUENCY: TWICE DAILY 5 DAYS A WEEK FOR 5.5 WEEKS.
     Route: 048
     Dates: start: 20090923
  4. FLUOROURACIL [Suspect]
     Indication: RECTAL CANCER
     Route: 065
     Dates: start: 20090923
  5. FLUOROURACIL [Suspect]
     Dosage: POST-OPERATIVE.
     Route: 065
  6. OXALIPLATIN [Suspect]
     Indication: RECTAL CANCER
     Dosage: FREQUENCY: OVER 2 HOURS ON DAYS 1, 8, 15, 22 AND 29
     Route: 042
     Dates: start: 20090923
  7. OXALIPLATIN [Suspect]
     Dosage: POST-OPERATIVE.
     Route: 042
  8. LEUCOVORIN CALCIUM [Suspect]
     Indication: RECTAL CANCER
     Dosage: POST-OPERATIVE
     Route: 042
  9. AMBIEN [Suspect]
     Indication: PRODUCT USED FOR UNKNOWN INDICATION
     Route: 065
  10. HYDROCODONE BITARTRATE + ACETAMINOPHEN [Suspect]
     Indication: PRODUCT USED FOR UNKNOWN INDICATION
     Dosage: DRUG NAME: HYDROCODONE/ACETAMINOPHEN.
     Route: 065

REACTIONS (3)
  - ANAL FISTULA [None]
  - DYSURIA [None]
  - FATIGUE [None]
